FAERS Safety Report 17584738 (Version 3)
Quarter: 2023Q4

REPORT INFORMATION
  Report Type: Spontaneous
  Country: US (occurrence: US)
  Receive Date: 20200326
  Receipt Date: 20231106
  Transmission Date: 20240109
  Serious: Yes (Hospitalization, Other)
  Sender: FDA-Public Use
  Company Number: US-GILEAD-2020-0456102

PATIENT
  Age: 58 Year
  Sex: Male
  Weight: 95 kg

DRUGS (82)
  1. TRUVADA [Suspect]
     Active Substance: EMTRICITABINE\TENOFOVIR DISOPROXIL FUMARATE
     Indication: HIV infection
     Dosage: UNK
     Route: 048
     Dates: start: 2004
  2. TRUVADA [Suspect]
     Active Substance: EMTRICITABINE\TENOFOVIR DISOPROXIL FUMARATE
     Dosage: UNK
     Route: 048
     Dates: start: 20050414, end: 20050729
  3. TRUVADA [Suspect]
     Active Substance: EMTRICITABINE\TENOFOVIR DISOPROXIL FUMARATE
     Dosage: UNK
     Route: 048
     Dates: start: 20050729, end: 20080102
  4. TRUVADA [Suspect]
     Active Substance: EMTRICITABINE\TENOFOVIR DISOPROXIL FUMARATE
     Dosage: UNK
     Route: 048
     Dates: start: 20080102, end: 200802
  5. TRUVADA [Suspect]
     Active Substance: EMTRICITABINE\TENOFOVIR DISOPROXIL FUMARATE
     Dosage: UNK
     Route: 048
     Dates: start: 20081001, end: 20170216
  6. TRUVADA [Suspect]
     Active Substance: EMTRICITABINE\TENOFOVIR DISOPROXIL FUMARATE
     Dosage: UNK
     Route: 048
     Dates: start: 200505, end: 201705
  7. BIKTARVY [Concomitant]
     Active Substance: BICTEGRAVIR SODIUM\EMTRICITABINE\TENOFOVIR ALAFENAMIDE FUMARATE
     Indication: HIV infection
  8. DESCOVY [Concomitant]
     Active Substance: EMTRICITABINE\TENOFOVIR ALAFENAMIDE FUMARATE
  9. EPCLUSA [Concomitant]
     Active Substance: SOFOSBUVIR\VELPATASVIR
  10. COMBIVIR [Concomitant]
     Active Substance: LAMIVUDINE\ZIDOVUDINE
  11. KALETRA [Concomitant]
     Active Substance: LOPINAVIR\RITONAVIR
  12. SUSTIVA [Concomitant]
     Active Substance: EFAVIRENZ
  13. BACLOFEN [Concomitant]
     Active Substance: BACLOFEN
     Indication: Muscle spasms
     Dosage: UNK
     Dates: start: 20120402, end: 20170501
  14. CELEXA [Concomitant]
     Active Substance: CITALOPRAM HYDROBROMIDE
  15. DICLOFENAC [Concomitant]
     Active Substance: DICLOFENAC
  16. GLIPIZIDE [Concomitant]
     Active Substance: GLIPIZIDE
  17. HYDROXYZINE PAMOATE [Concomitant]
     Active Substance: HYDROXYZINE PAMOATE
  18. IBUPROFEN [Concomitant]
     Active Substance: IBUPROFEN
  19. LISINOPRIL [Concomitant]
     Active Substance: LISINOPRIL
  20. METFORMIN [Concomitant]
     Active Substance: METFORMIN HYDROCHLORIDE
  21. OMEPRAZOLE [Concomitant]
     Active Substance: OMEPRAZOLE
  22. OXYCODONE [Concomitant]
     Active Substance: OXYCODONE
  23. PENICILLIN [Concomitant]
     Active Substance: PENICILLIN
  24. QUETIAPINE FUMARATE [Concomitant]
     Active Substance: QUETIAPINE FUMARATE
  25. RANITIDINE [Concomitant]
     Active Substance: RANITIDINE
  26. SUDAFED [Concomitant]
     Active Substance: PSEUDOEPHEDRINE HYDROCHLORIDE
  27. THIAMINE [Concomitant]
     Active Substance: THIAMINE
  28. TINACTIN [Concomitant]
     Active Substance: TOLNAFTATE
  29. TRAZODONE [Concomitant]
     Active Substance: TRAZODONE HYDROCHLORIDE
  30. TYLENOL [Concomitant]
     Active Substance: ACETAMINOPHEN
  31. ALBUTEROL [Concomitant]
     Active Substance: ALBUTEROL
  32. ALUMINUM HYDROXIDE\MAGNESIUM HYDROXIDE [Concomitant]
     Active Substance: ALUMINUM HYDROXIDE\MAGNESIUM HYDROXIDE
  33. AMITRIPTYLINE [Concomitant]
     Active Substance: AMITRIPTYLINE
  34. AMOXICILLIN [Concomitant]
     Active Substance: AMOXICILLIN
  35. AMOXICILLIN\CLAVULANIC ACID [Concomitant]
     Active Substance: AMOXICILLIN\CLAVULANIC ACID
  36. ASPIRIN [Concomitant]
     Active Substance: ASPIRIN
  37. AZITHROMYCIN [Concomitant]
     Active Substance: AZITHROMYCIN
  38. BENADRYL [Concomitant]
     Active Substance: DIPHENHYDRAMINE HYDROCHLORIDE
  39. BISACODYL [Concomitant]
     Active Substance: BISACODYL
  40. CEPHALEXIN [Concomitant]
     Active Substance: CEPHALEXIN
  41. CIMETIDINE [Concomitant]
     Active Substance: CIMETIDINE
  42. CLARITHROMYCIN [Concomitant]
     Active Substance: CLARITHROMYCIN
  43. CLINDAMYCIN [Concomitant]
     Active Substance: CLINDAMYCIN
  44. CYMBALTA [Concomitant]
     Active Substance: DULOXETINE HYDROCHLORIDE
  45. DAPSONE [Concomitant]
     Active Substance: DAPSONE
  46. DOCUSATE [Concomitant]
     Active Substance: DOCUSATE
  47. FAMOTIDINE [Concomitant]
     Active Substance: FAMOTIDINE
  48. GABAPENTIN [Concomitant]
     Active Substance: GABAPENTIN
  49. ACETAMINOPHEN\HYDROCODONE [Concomitant]
     Active Substance: ACETAMINOPHEN\HYDROCODONE
  50. HYDROCORTISONE [Concomitant]
     Active Substance: HYDROCORTISONE
  51. HYDROXYZINE HYDROCHLORIDE [Concomitant]
     Active Substance: HYDROXYZINE HYDROCHLORIDE
  52. LEVITRA [Concomitant]
     Active Substance: VARDENAFIL HYDROCHLORIDE
  53. MAGNESIUM CITRATE [Concomitant]
     Active Substance: MAGNESIUM CITRATE
  54. MELOXICAM [Concomitant]
     Active Substance: MELOXICAM
  55. METFORMIN HYDROCHLORIDE [Concomitant]
     Active Substance: METFORMIN HYDROCHLORIDE
  56. MIRALAX [Concomitant]
     Active Substance: POLYETHYLENE GLYCOL 3350
  57. MIRTAZAPINE [Concomitant]
     Active Substance: MIRTAZAPINE
  58. MUCINEX [Concomitant]
     Active Substance: GUAIFENESIN
  59. MUCINEX DM [Concomitant]
     Active Substance: DEXTROMETHORPHAN HYDROBROMIDE\GUAIFENESIN
  60. NAPROXEN [Concomitant]
     Active Substance: NAPROXEN
  61. NICOTINE [Concomitant]
     Active Substance: NICOTINE
  62. NICOTINE TRANSDERMAL SYSTEM [Concomitant]
     Active Substance: NICOTINE
  63. NITROFURANTOIN [Concomitant]
     Active Substance: NITROFURANTOIN
  64. ACETAMINOPHEN\OXYCODONE HYDROCHLORIDE\OXYCODONE TEREPHTHALATE [Concomitant]
     Active Substance: ACETAMINOPHEN\OXYCODONE HYDROCHLORIDE\OXYCODONE TEREPHTHALATE
  65. PREDNISONE [Concomitant]
     Active Substance: PREDNISONE
  66. PROMETHAZINE [Concomitant]
     Active Substance: PROMETHAZINE HYDROCHLORIDE
  67. HERBALS\PLANTAGO OVATA SEED COAT [Concomitant]
     Active Substance: HERBALS\PLANTAGO OVATA SEED COAT
  68. RABEPRAZOLE [Concomitant]
     Active Substance: RABEPRAZOLE
  69. RESTORIL [Concomitant]
     Active Substance: TEMAZEPAM
  70. SENNOSIDES [Concomitant]
     Active Substance: SENNOSIDES
  71. SIMETHICONE (DIMETHICONE) [Concomitant]
     Active Substance: DIMETHICONE
  72. SUMATRIPTAN SUCCINATE [Concomitant]
     Active Substance: SUMATRIPTAN SUCCINATE
  73. TERAZOSIN HYDROCHLORIDE [Concomitant]
     Active Substance: TERAZOSIN HYDROCHLORIDE
  74. TESTOSTERONE [Concomitant]
     Active Substance: TESTOSTERONE
  75. TOUJEO [Concomitant]
     Active Substance: INSULIN GLARGINE
  76. TRAMADOL [Concomitant]
     Active Substance: TRAMADOL\TRAMADOL HYDROCHLORIDE
  77. TYLENOL WITH CODEINE [Concomitant]
     Active Substance: ACETAMINOPHEN\CODEINE PHOSPHATE
  78. VANCOCIN [Concomitant]
     Active Substance: VANCOMYCIN HYDROCHLORIDE
  79. VIAGRA [Concomitant]
     Active Substance: SILDENAFIL CITRATE
  80. ZUBSOLV [Concomitant]
     Active Substance: BUPRENORPHINE HYDROCHLORIDE\NALOXONE HYDROCHLORIDE
  81. ZYMAXID [Concomitant]
     Active Substance: GATIFLOXACIN
  82. DULOXETINE [Concomitant]
     Active Substance: DULOXETINE

REACTIONS (16)
  - Acute kidney injury [Recovered/Resolved]
  - Acute kidney injury [Recovered/Resolved]
  - Osteoporosis [Unknown]
  - Renal impairment [Recovered/Resolved]
  - Renal impairment [Recovered/Resolved]
  - Hyperkalaemia [Not Recovered/Not Resolved]
  - Bone density decreased [Unknown]
  - Emotional distress [Not Recovered/Not Resolved]
  - Anxiety [Not Recovered/Not Resolved]
  - Anhedonia [Not Recovered/Not Resolved]
  - Pain [Not Recovered/Not Resolved]
  - Economic problem [Unknown]
  - Osteopenia [Not Recovered/Not Resolved]
  - Joint injury [Unknown]
  - Rib fracture [Not Recovered/Not Resolved]
  - Blood creatinine increased [Recovered/Resolved]

NARRATIVE: CASE EVENT DATE: 20120701
